FAERS Safety Report 11201135 (Version 1)
Quarter: 2015Q2

REPORT INFORMATION
  Report Type: Spontaneous
  Country: IT (occurrence: IT)
  Receive Date: 20150619
  Receipt Date: 20150619
  Transmission Date: 20150821
  Serious: Yes (Death, Hospitalization)
  Sender: FDA-Public Use
  Company Number: IT-HOSPIRA-2668632

PATIENT
  Age: 36 Year
  Sex: Female

DRUGS (4)
  1. MELFALAN /00006401/ [Suspect]
     Active Substance: MELPHALAN
     Indication: LYMPHOMA
     Route: 042
     Dates: start: 20111215, end: 20111215
  2. ETOPOSIDE. [Suspect]
     Active Substance: ETOPOSIDE
     Indication: LYMPHOMA
     Dosage: DAILY
     Route: 042
     Dates: start: 20111211, end: 20111214
  3. FOTEMUSTINE [Suspect]
     Active Substance: FOTEMUSTINE
     Indication: LYMPHOMA
     Route: 042
     Dates: start: 20111210, end: 20111210
  4. CYTARABINE. [Suspect]
     Active Substance: CYTARABINE
     Indication: LYMPHOMA
     Dosage: DAILY
     Route: 042
     Dates: start: 20111211, end: 20111214

REACTIONS (1)
  - Pneumonia viral [Fatal]

NARRATIVE: CASE EVENT DATE: 20120111
